FAERS Safety Report 16499263 (Version 1)
Quarter: 2019Q3

REPORT INFORMATION
  Report Type: Spontaneous
  Country: MY (occurrence: MY)
  Receive Date: 20190701
  Receipt Date: 20190701
  Transmission Date: 20191004
  Serious: Yes (Other)
  Sender: FDA-Public Use
  Company Number: MY-SUN PHARMACEUTICAL INDUSTRIES LTD-2019R1-211459

PATIENT
  Age: 53 Year
  Sex: Female

DRUGS (1)
  1. ROZIDAL [Suspect]
     Active Substance: RISPERIDONE
     Indication: SCHIZOPHRENIA
     Dosage: UNK (4 MG)
     Route: 048

REACTIONS (1)
  - Gaze palsy [Recovered/Resolved]
